FAERS Safety Report 6826391-X (Version None)
Quarter: 2010Q3

REPORT INFORMATION
  Report Type: 
  Country: None (occurrence: None)
  Receive Date: 20100709
  Receipt Date: 20100630
  Transmission Date: 20110219
  Serious: Yes (Other)
  Sender: FDA-Public Use
  Company Number: GB-TEVA-236184ISR

PATIENT
  Age: 75 Year
  Sex: Female
  Weight: 55.2 kg

DRUGS (1)
  1. METOPROLOL [Suspect]
     Indication: MYOCARDIAL ISCHAEMIA
     Route: 048
     Dates: start: 20061026

REACTIONS (3)
  - GINGIVAL PAIN [None]
  - HAEMORRHAGE [None]
  - PEMPHIGOID [None]
